FAERS Safety Report 4647718-3 (Version None)
Quarter: 2005Q2

REPORT INFORMATION
  Report Type: 
  Country: None (occurrence: None)
  Receive Date: 20050426
  Receipt Date: 20050418
  Transmission Date: 20051028
  Serious: Yes (Other)
  Sender: FDA-Public Use
  Company Number: CHPA2003US02247

PATIENT
  Age: 53 Year
  Sex: Female

DRUGS (34)
  1. EX-LAX (NCH) [Suspect]
     Indication: WEIGHT CONTROL
     Dosage: ORAL
     Route: 048
     Dates: start: 19630101
  2. NEXIUM [Concomitant]
  3. WELLBUTRIN SR [Concomitant]
  4. VIOXX [Concomitant]
  5. LORTAB (HYDROCODONE BITRATRATE, PARACETAMOL) [Concomitant]
  6. FOSAMAX [Concomitant]
  7. CLARITIN-D (LORATADINE, PSEUDOEPHERINE SULFATE) [Concomitant]
  8. MERIDIA [Concomitant]
  9. TOPROL-XL [Concomitant]
  10. CELEXA [Concomitant]
  11. XENICAL [Concomitant]
  12. PRILOSEC [Concomitant]
  13. TUSSIONEX (HYDROCHODONE BITARTRATE, PHENYLTOLOXAMINE) [Concomitant]
  14. CARAFATE [Concomitant]
  15. REGLAN /USA/ (METOCLOPRAMIDE HYDROCHLORIDE) [Concomitant]
  16. DEPO-MEDROL [Concomitant]
  17. XYLOCAINE [Concomitant]
  18. BEXTRA [Concomitant]
  19. CORTENEMA [Concomitant]
  20. PROTONIX [Concomitant]
  21. CELESTONE /NET/ (BETAMETHASONE) [Concomitant]
  22. ADVIL [Concomitant]
  23. DURATUSS (GUAIFENESIN, PSEUDOEPHEDRINE HYDROCHLORIDE) [Concomitant]
  24. ZITHROMAX [Concomitant]
  25. AVELOX [Concomitant]
  26. IMITREX ^CERENEX^ (SUMATRIPTAN SUCCINATE) [Concomitant]
  27. CARNITINE (CARNITINE) [Concomitant]
  28. ALBUEROL (SALBUMATOL) [Concomitant]
  29. ZOLOFT [Concomitant]
  30. MOBIC [Concomitant]
  31. SKELAXIN [Concomitant]
  32. MIRALAX [Concomitant]
  33. TENORETIC 100 [Concomitant]
  34. ULTRACET [Concomitant]

REACTIONS (26)
  - ADRENAL DISORDER [None]
  - ANORECTAL DISORDER [None]
  - APPENDIX DISORDER [None]
  - BACK PAIN [None]
  - CALCINOSIS [None]
  - CONSTIPATION [None]
  - DRUG DEPENDENCE [None]
  - ECONOMIC PROBLEM [None]
  - EMOTIONAL DISORDER [None]
  - GASTRIC POLYPS [None]
  - GASTRIC ULCER [None]
  - GASTRITIS [None]
  - GASTROINTESTINAL HAEMORRHAGE [None]
  - HEARING IMPAIRED [None]
  - INTESTINAL OBSTRUCTION [None]
  - IRRITABLE BOWEL SYNDROME [None]
  - MELANOSIS COLI [None]
  - MIGRAINE [None]
  - MUCOSAL EROSION [None]
  - OEDEMA PERIPHERAL [None]
  - OVARIAN CYST [None]
  - PHYSICAL DISABILITY [None]
  - REFLUX OESOPHAGITIS [None]
  - STRESS [None]
  - ULCER [None]
  - WEIGHT INCREASED [None]
